FAERS Safety Report 20839926 (Version 14)
Quarter: 2023Q4

REPORT INFORMATION
  Report Type: Spontaneous
  Country: US (occurrence: US)
  Receive Date: 20220517
  Receipt Date: 20231120
  Transmission Date: 20240109
  Serious: Yes (Other)
  Sender: FDA-Public Use
  Company Number: US-PFIZER INC-202200662092

PATIENT
  Age: 78 Year
  Sex: Female

DRUGS (1)
  1. IBRANCE [Suspect]
     Active Substance: PALBOCICLIB
     Indication: Breast cancer metastatic
     Dosage: 21 DAYS ON AND 7 DAYS OFF
     Route: 048

REACTIONS (10)
  - Arthritis [Unknown]
  - Neoplasm recurrence [Unknown]
  - Illness [Unknown]
  - Malaise [Unknown]
  - Fatigue [Unknown]
  - Pain in extremity [Unknown]
  - Pain [Unknown]
  - Sinusitis [Unknown]
  - Somnolence [Unknown]
  - Pain [Unknown]
